FAERS Safety Report 6737571-6 (Version None)
Quarter: 2010Q2

REPORT INFORMATION
  Report Type: 
  Country: None (occurrence: None)
  Receive Date: 20100521
  Receipt Date: 20100521
  Transmission Date: 20101027
  Serious: Yes (Hospitalization)
  Sender: FDA-Public Use
  Company Number: None

PATIENT
  Age: 78 Year
  Sex: Female
  Weight: 41 kg

DRUGS (16)
  1. WARFARIN SODIUM [Suspect]
     Indication: ATRIAL FIBRILLATION
     Dosage: 4 MG ALT WITH 3 MG DAILY PO
     Route: 048
     Dates: start: 20090101, end: 20100406
  2. WARFARIN SODIUM [Suspect]
     Indication: DEEP VEIN THROMBOSIS
     Dosage: 4 MG ALT WITH 3 MG DAILY PO
     Route: 048
     Dates: start: 20090101, end: 20100406
  3. MIRTAZAPINE [Concomitant]
  4. ALPRAZOLAM [Concomitant]
  5. FUROSEMIDE [Concomitant]
  6. PRAVASTATIN [Concomitant]
  7. METOPROLOL [Concomitant]
  8. OXYCODONE [Concomitant]
  9. CITALOPRAM [Concomitant]
  10. NIFEDIPINE [Concomitant]
  11. BISACODYL [Concomitant]
  12. FERROUS SULFATE TAB [Concomitant]
  13. OYSTER SHELL CALCIUM [Concomitant]
  14. CHOLECALCIFEROL [Concomitant]
  15. ASCORBIC ACID [Concomitant]
  16. MULTI-VITAMIN [Concomitant]

REACTIONS (4)
  - ACUTE MYOCARDIAL INFARCTION [None]
  - EPISTAXIS [None]
  - INTERNATIONAL NORMALISED RATIO INCREASED [None]
  - SINUSITIS [None]
